FAERS Safety Report 13428664 (Version 5)
Quarter: 2017Q4

REPORT INFORMATION
  Report Type: Report from Study
  Country: None (occurrence: IT)
  Receive Date: 20170411
  Receipt Date: 20171003
  Transmission Date: 20180320
  Serious: Yes (Life-Threatening, Hospitalization)
  Sender: FDA-Public Use
  Company Number: IT-ABBVIE-17P-083-1897462-00

PATIENT
  Age: 54 Year
  Sex: Male
  Weight: 79 kg

DRUGS (27)
  1. RITUXIMAB. [Suspect]
     Active Substance: RITUXIMAB
     Indication: B-CELL LYMPHOMA
     Dosage: MOST RECENT DOSE (750 MG): 15 FEB 2017 AT 1300
     Route: 042
     Dates: start: 20161102
  2. ONDANSETRON [Concomitant]
     Active Substance: ONDANSETRON
     Indication: PROPHYLAXIS OF NAUSEA AND VOMITING
  3. BROMAZEPAM W/PROPANTHELINE BROMIDE [Concomitant]
     Indication: PROPHYLAXIS
     Dates: start: 20161202, end: 20170308
  4. VINCRISTINE [Suspect]
     Active Substance: VINCRISTINE
     Indication: B-CELL LYMPHOMA
     Dosage: MOST RECENT DOSE (2 MG): 25 JAN 2017 AT 1700
     Route: 042
     Dates: start: 20161102
  5. LEVOFLOXACIN. [Concomitant]
     Active Substance: LEVOFLOXACIN
     Indication: PYREXIA
     Dates: start: 20170203, end: 20170203
  6. GRANISETRON [Concomitant]
     Active Substance: GRANISETRON
     Indication: PRODUCT USED FOR UNKNOWN INDICATION
     Dosage: ON DAYS OF CHOP ADMINISTRATION
     Dates: start: 20161102, end: 20170215
  7. ONDANSETRON [Concomitant]
     Active Substance: ONDANSETRON
     Indication: NAUSEA
     Dates: start: 20161123, end: 20170308
  8. BISOPROLOL [Concomitant]
     Active Substance: BISOPROLOL
     Indication: ATRIAL FIBRILLATION
  9. CIPROFLOXACIN. [Concomitant]
     Active Substance: CIPROFLOXACIN
     Indication: SEPSIS
  10. PREDNISONE. [Suspect]
     Active Substance: PREDNISONE
     Dosage: DOSING TAPERING
     Route: 048
     Dates: start: 20170130, end: 20170202
  11. PREDNISONE. [Suspect]
     Active Substance: PREDNISONE
     Indication: B-CELL LYMPHOMA
     Dosage: MOST RECENT DOSE (100 MG): 19 FEB 2017; ON DAYS 1-5 OF EACH CYCLE
     Route: 048
     Dates: start: 20161102
  12. CLORPHENAMINE [Concomitant]
     Indication: PREMEDICATION
     Dates: start: 20161102, end: 20170412
  13. PARACETAMOL [Concomitant]
     Active Substance: ACETAMINOPHEN
     Indication: PREMEDICATION
     Dates: start: 20161102, end: 20170412
  14. ACYCLOVIR. [Concomitant]
     Active Substance: ACYCLOVIR
     Indication: INFECTION PROPHYLAXIS
     Dates: start: 20161105, end: 20170526
  15. ALLOPURINOL. [Concomitant]
     Active Substance: ALLOPURINOL
     Indication: PRODUCT USED FOR UNKNOWN INDICATION
     Dates: start: 20161123, end: 20170224
  16. VENETOCLAX. [Suspect]
     Active Substance: VENETOCLAX
     Indication: B-CELL LYMPHOMA
     Dosage: MOST RECENT DOSE (800 MG): 24 FEB 2017
     Route: 048
     Dates: start: 20161105
  17. PEGFILGRASTIM [Concomitant]
     Active Substance: PEGFILGRASTIM
     Indication: PROPHYLAXIS
     Dates: start: 20170216, end: 20170216
  18. RIFAXIMINA [Concomitant]
     Active Substance: RIFAXIMIN
     Indication: GASTRIC DISORDER
     Dates: start: 20170227, end: 20170305
  19. DOXORUBICIN [Suspect]
     Active Substance: DOXORUBICIN
     Indication: B-CELL LYMPHOMA
     Dosage: MOST RECENT DOSE (100 MG): 15 FEB 2017 AT 1630
     Route: 042
     Dates: start: 20161102
  20. OMEPRAZOLE. [Concomitant]
     Active Substance: OMEPRAZOLE
     Indication: PROPHYLAXIS
     Dates: start: 20161027, end: 20170526
  21. CIPROFLOXACIN. [Concomitant]
     Active Substance: CIPROFLOXACIN
     Indication: CYSTITIS
     Dates: start: 20170304, end: 20170317
  22. LACTULOSE. [Concomitant]
     Active Substance: LACTULOSE
     Indication: CONSTIPATION
     Dates: start: 20161116, end: 20170308
  23. CYCLOPHOSPHAMIDE. [Suspect]
     Active Substance: CYCLOPHOSPHAMIDE
     Indication: B-CELL LYMPHOMA
     Dosage: MOST RECENT DOSE (1500 MG): 15 FEB 2017 AT 1700
     Route: 042
     Dates: start: 20161102
  24. PREDNISONE. [Suspect]
     Active Substance: PREDNISONE
     Dosage: DOSING TAPERING
     Route: 048
     Dates: start: 20170220, end: 20170223
  25. BISOPROLOL [Concomitant]
     Active Substance: BISOPROLOL
     Indication: CARDIOVASCULAR EVENT PROPHYLAXIS
     Dates: start: 201601, end: 20170526
  26. SULFAMETHOXAZOLE/TRIMETOPRIM [Concomitant]
     Active Substance: SULFAMETHOXAZOLE\TRIMETHOPRIM
     Indication: INFECTION PROPHYLAXIS
     Dates: start: 20161106
  27. CIPROFLOXACIN. [Concomitant]
     Active Substance: CIPROFLOXACIN
     Indication: STRANGURY
     Dates: start: 20170203, end: 20170207

REACTIONS (1)
  - Sepsis [Recovered/Resolved]

NARRATIVE: CASE EVENT DATE: 20170301
